FAERS Safety Report 9565308 (Version 1)
Quarter: 2013Q3

REPORT INFORMATION
  Report Type: Spontaneous
  Country: US (occurrence: US)
  Receive Date: 20130930
  Receipt Date: 20130930
  Transmission Date: 20140515
  Serious: Yes (Other)
  Sender: FDA-Public Use
  Company Number: US-ROXANE LABORATORIES, INC.-2013-RO-01592RO

PATIENT
  Age: 28 Year
  Sex: Female

DRUGS (5)
  1. PREDNISONE [Suspect]
     Indication: SYSTEMIC LUPUS ERYTHEMATOSUS
     Dosage: 5 MG
  2. PREDNISONE [Suspect]
     Indication: LUPUS NEPHRITIS
  3. NAPROXEN [Suspect]
     Indication: SYSTEMIC LUPUS ERYTHEMATOSUS
  4. HYDROXYCHLOROQUINE [Suspect]
     Indication: SYSTEMIC LUPUS ERYTHEMATOSUS
     Dosage: 400 MG
  5. CONTRACEPTIVE PILLS [Concomitant]
     Route: 048

REACTIONS (5)
  - Lupus nephritis [Unknown]
  - Pleural effusion [Unknown]
  - Gastritis [Unknown]
  - Hypertension [Unknown]
  - Glucose tolerance impaired [Unknown]
